FAERS Safety Report 8211605-4 (Version None)
Quarter: 2012Q1

REPORT INFORMATION
  Report Type: 
  Country: None (occurrence: None)
  Receive Date: 20120229
  Receipt Date: 20110125
  Transmission Date: 20120608
  Serious: Yes (Other)
  Sender: FDA-Public Use
  Company Number: US-JNJFOC-20100504235

PATIENT
  Age: 52 Year
  Sex: Male
  Weight: 61.2356 kg

DRUGS (1)
  1. MOTRIN IB [Suspect]
     Indication: PAIN
     Dosage: ORAL
     Route: 048
     Dates: end: 20090101

REACTIONS (2)
  - GASTROINTESTINAL HAEMORRHAGE [None]
  - INSOMNIA [None]
